FAERS Safety Report 26061603 (Version 1)
Quarter: 2025Q4

REPORT INFORMATION
  Report Type: Spontaneous
  Country: US (occurrence: US)
  Receive Date: 20251118
  Receipt Date: 20251118
  Transmission Date: 20260118
  Serious: No
  Sender: TIANJIN TIANYAO PHARMACEUTICALS CO.,LTD.
  Company Number: US-tianyaoyaoye-2025-tjpc-000007

PATIENT
  Age: 72 Year
  Sex: Female
  Weight: 86.18 kg

DRUGS (8)
  1. METHYLPREDNISOLONE [Suspect]
     Active Substance: METHYLPREDNISOLONE
     Indication: Ill-defined disorder
     Dosage: 6 TABLETS, ONE DAY
     Route: 048
     Dates: start: 20250803, end: 20250803
  2. METHYLPREDNISOLONE [Suspect]
     Active Substance: METHYLPREDNISOLONE
     Indication: Ill-defined disorder
     Dosage: 5 TABLETS, ONE DAY
     Route: 048
     Dates: start: 20250804, end: 20250804
  3. METHYLPREDNISOLONE [Suspect]
     Active Substance: METHYLPREDNISOLONE
     Indication: Ill-defined disorder
     Dosage: 4 TABLETS, ONE DAY
     Route: 048
     Dates: start: 20250805, end: 20250805
  4. METHYLPREDNISOLONE [Suspect]
     Active Substance: METHYLPREDNISOLONE
     Indication: Ill-defined disorder
     Dosage: 3 TABLETS, ONE DAY
     Route: 048
     Dates: start: 20250806, end: 20250806
  5. METHYLPREDNISOLONE [Suspect]
     Active Substance: METHYLPREDNISOLONE
     Indication: Ill-defined disorder
     Dosage: 2 TABLETS, ONE DAY
     Route: 048
     Dates: start: 20250807, end: 20250807
  6. METHYLPREDNISOLONE [Suspect]
     Active Substance: METHYLPREDNISOLONE
     Indication: Ill-defined disorder
     Dosage: 1 TABLET, ONE DAY
     Route: 048
     Dates: start: 20250808, end: 20250808
  7. MELOXICAM [Concomitant]
     Active Substance: MELOXICAM
     Indication: Product used for unknown indication
     Dosage: UNK
  8. TYLENOL [Concomitant]
     Active Substance: ACETAMINOPHEN
     Indication: Product used for unknown indication
     Dosage: UNK

REACTIONS (2)
  - Pruritus [Recovered/Resolved]
  - Erythema [Recovered/Resolved]

NARRATIVE: CASE EVENT DATE: 20250807
